FAERS Safety Report 8901045 (Version 1)
Quarter: 2012Q4

REPORT INFORMATION
  Report Type: 
  Country: FR (occurrence: FR)
  Receive Date: 20121109
  Receipt Date: 20121109
  Transmission Date: 20130627
  Serious: Yes (Hospitalization)
  Sender: FDA-Public Use
  Company Number: FR-BRISTOL-MYERS SQUIBB COMPANY-17095845

PATIENT
  Age: 22 Year
  Sex: Male

DRUGS (1)
  1. COUMADIN TABS 5 MG [Suspect]
     Indication: EMBOLISM

REACTIONS (1)
  - Phlebitis [Recovered/Resolved]
